FAERS Safety Report 4650797-0 (Version None)
Quarter: 2005Q2

REPORT INFORMATION
  Report Type: 
  Country: None (occurrence: None)
  Receive Date: 20050503
  Receipt Date: 20050301
  Transmission Date: 20051028
  Serious: Yes (Other)
  Sender: FDA-Public Use
  Company Number: NL-GLAXOSMITHKLINE-B0374583A

PATIENT
  Age: 76 Year
  Sex: Male
  Weight: 72 kg

DRUGS (3)
  1. ROPINIROLE HCL [Suspect]
     Indication: PARKINSONISM
     Dosage: 1MG THREE TIMES PER DAY
     Route: 048
     Dates: start: 20040210, end: 20050209
  2. LIPITOR [Concomitant]
  3. SINEMET CR [Concomitant]
     Dates: start: 20040712

REACTIONS (3)
  - DELUSION [None]
  - DEVICE INTERACTION [None]
  - TONGUE DISCOLOURATION [None]
